FAERS Safety Report 8856601 (Version 1)
Quarter: 2012Q4

REPORT INFORMATION
  Report Type: Spontaneous
  Country: US (occurrence: None)
  Receive Date: 20121019
  Receipt Date: 20121019
  Transmission Date: 20130627
  Serious: Yes (Life-Threatening, Hospitalization)
  Sender: FDA-Public Use
  Company Number: 2012US000017

PATIENT
  Age: 80 Year
  Sex: Male

DRUGS (1)
  1. ENTEREG [Suspect]
     Indication: COLON OPERATION
     Route: 048
     Dates: start: 20121012

REACTIONS (2)
  - Myocardial infarction [None]
  - Post procedural complication [None]
